FAERS Safety Report 4926021-8 (Version None)
Quarter: 2006Q1

REPORT INFORMATION
  Report Type: 
  Country: None (occurrence: None)
  Receive Date: 20060228
  Receipt Date: 20050725
  Transmission Date: 20060701
  Serious: No
  Sender: FDA-Public Use
  Company Number: US-GLAXOSMITHKLINE-A0568036A

PATIENT
  Age: 11 Year
  Sex: Male
  Weight: 35.9 kg

DRUGS (1)
  1. LAMICTAL [Suspect]
     Dosage: 10MG TWICE PER DAY
     Route: 048
     Dates: start: 20050609, end: 20050724

REACTIONS (1)
  - RASH [None]
